FAERS Safety Report 23467828 (Version 1)
Quarter: 2024Q1

REPORT INFORMATION
  Report Type: Spontaneous
  Country: CN (occurrence: CN)
  Receive Date: 20240201
  Receipt Date: 20240201
  Transmission Date: 20240409
  Serious: Yes (Hospitalization, Disabling)
  Sender: FDA-Public Use
  Company Number: CN-Eisai-EC-2024-158097

PATIENT
  Age: 56 Year
  Sex: Male
  Weight: 58 kg

DRUGS (5)
  1. LENVIMA [Suspect]
     Active Substance: LENVATINIB
     Indication: Hepatocellular carcinoma
     Route: 048
     Dates: start: 20230803, end: 20230812
  2. LENVIMA [Suspect]
     Active Substance: LENVATINIB
     Route: 048
     Dates: start: 20230813, end: 20240124
  3. OXALIPLATIN [Concomitant]
     Active Substance: OXALIPLATIN
     Indication: Hepatocellular carcinoma
     Route: 013
     Dates: start: 20240111, end: 20240111
  4. LEUCOVORIN CALCIUM [Concomitant]
     Active Substance: LEUCOVORIN CALCIUM
     Indication: Hepatocellular carcinoma
     Route: 013
     Dates: start: 20240111, end: 20240111
  5. FLUOROURACIL [Concomitant]
     Active Substance: FLUOROURACIL
     Indication: Hepatocellular carcinoma
     Route: 013
     Dates: start: 20240111, end: 20240111

REACTIONS (2)
  - Gastric ulcer [Unknown]
  - Dysphonia [Unknown]

NARRATIVE: CASE EVENT DATE: 20230812
